FAERS Safety Report 14631638 (Version 1)
Quarter: 2018Q1

REPORT INFORMATION
  Report Type: Report from Study
  Country: ES (occurrence: ES)
  Receive Date: 20180313
  Receipt Date: 20180313
  Transmission Date: 20180509
  Serious: Yes (Congenital Anomaly, Other)
  Sender: FDA-Public Use
  Company Number: ES-GLAXOSMITHKLINE-ES2018GSK042284

PATIENT

DRUGS (1)
  1. LAMOTRIGINE. [Suspect]
     Active Substance: LAMOTRIGINE
     Indication: EPILEPSY
     Dosage: 250 MG, QD
     Route: 064

REACTIONS (4)
  - Ventricular septal defect [Unknown]
  - Partial seizures [Unknown]
  - Pulmonary valve stenosis [Unknown]
  - Foetal exposure during pregnancy [Unknown]
